FAERS Safety Report 23764713 (Version 1)
Quarter: 2024Q2

REPORT INFORMATION
  Report Type: Spontaneous
  Country: US (occurrence: US)
  Receive Date: 20240420
  Receipt Date: 20240420
  Transmission Date: 20240716
  Serious: No
  Sender: FDA-Public Use
  Company Number: US-HALEON-2167562

PATIENT

DRUGS (2)
  1. ROBITUSSIN MEDI-SOOTHERS [Suspect]
     Active Substance: DEXTROMETHORPHAN HYDROBROMIDE\MENTHOL
     Indication: Illness
     Dates: start: 2024
  2. ROBITUSSIN MEDI-SOOTHERS [Suspect]
     Active Substance: DEXTROMETHORPHAN HYDROBROMIDE\MENTHOL
     Indication: Aphonia

REACTIONS (2)
  - Drug effective for unapproved indication [Unknown]
  - Product use in unapproved indication [Unknown]

NARRATIVE: CASE EVENT DATE: 20240101
